FAERS Safety Report 15139405 (Version 1)
Quarter: 2018Q3

REPORT INFORMATION
  Report Type: Spontaneous
  Country: US (occurrence: US)
  Receive Date: 20180713
  Receipt Date: 20180713
  Transmission Date: 20181010
  Serious: No
  Sender: FDA-Public Use
  Company Number: PHEH2018US028684

PATIENT
  Sex: Female

DRUGS (1)
  1. KISQALI [Suspect]
     Active Substance: RIBOCICLIB
     Indication: BREAST NEOPLASM
     Dosage: 200 MG, QD
     Route: 048

REACTIONS (3)
  - Alopecia [Unknown]
  - Increased appetite [Unknown]
  - Fatigue [Unknown]
